FAERS Safety Report 9757370 (Version 1)
Quarter: 2013Q4

REPORT INFORMATION
  Report Type: Spontaneous
  Country: US (occurrence: US)
  Receive Date: 20131214
  Receipt Date: 20131214
  Transmission Date: 20140711
  Serious: Yes (Hospitalization)
  Sender: FDA-Public Use
  Company Number: US-009507513-1312USA003538

PATIENT
  Age: 37 Year
  Sex: Male

DRUGS (2)
  1. PRINIVIL [Suspect]
     Indication: HYPERTENSION
     Dosage: 20 MG, QD
  2. LOPRESSOR [Concomitant]
     Indication: BLOOD PRESSURE
     Dosage: UNK

REACTIONS (1)
  - Angioedema [Recovered/Resolved]
